FAERS Safety Report 12455633 (Version 1)
Quarter: 2016Q2

REPORT INFORMATION
  Report Type: Spontaneous
  Country: JP (occurrence: JP)
  Receive Date: 20160610
  Receipt Date: 20160610
  Transmission Date: 20160815
  Serious: Yes (Other)
  Sender: FDA-Public Use
  Company Number: PHJP1997JP001455

PATIENT
  Age: 77 Year
  Sex: Female
  Weight: 50 kg

DRUGS (5)
  1. TEGRETOL [Suspect]
     Active Substance: CARBAMAZEPINE
     Indication: HERPES ZOSTER
     Dosage: 100 MG, UNK
     Route: 048
     Dates: start: 19970430, end: 19970507
  2. TEGRETOL [Suspect]
     Active Substance: CARBAMAZEPINE
     Dosage: 100 MG, UNK
     Route: 048
     Dates: start: 19970510, end: 19970515
  3. TAMBOCOR [Suspect]
     Active Substance: FLECAINIDE ACETATE
     Indication: ATRIAL FIBRILLATION
     Dosage: 150 MG, UNK
     Route: 048
     Dates: start: 19970501, end: 19970507
  4. DIGOXIN. [Concomitant]
     Active Substance: DIGOXIN
     Indication: ATRIAL FIBRILLATION
     Dosage: 0.125 MG, UNK
     Route: 048
     Dates: start: 19831122, end: 19970507
  5. VASOLAN//VERAPAMIL HYDROCHLORIDE [Suspect]
     Active Substance: VERAPAMIL HYDROCHLORIDE
     Indication: ATRIAL FIBRILLATION
     Dosage: 120 MG, UNK
     Route: 048
     Dates: start: 19970501, end: 19970507

REACTIONS (2)
  - Sinus arrest [Recovered/Resolved]
  - Ventricular fibrillation [Not Recovered/Not Resolved]

NARRATIVE: CASE EVENT DATE: 19970513
